FAERS Safety Report 6337682-3 (Version None)
Quarter: 2009Q3

REPORT INFORMATION
  Report Type: 
  Country: None (occurrence: None)
  Receive Date: 20090902
  Receipt Date: 20090827
  Transmission Date: 20100115
  Serious: Yes (Hospitalization)
  Sender: FDA-Public Use
  Company Number: AU-BRISTOL-MYERS SQUIBB COMPANY-14758080

PATIENT
  Age: 73 Year
  Sex: Male

DRUGS (2)
  1. AVAPRO [Suspect]
     Indication: ESSENTIAL HYPERTENSION
     Dates: end: 20080313
  2. RANITIDINE [Concomitant]

REACTIONS (3)
  - FALL [None]
  - HYPONATRAEMIA [None]
  - SKIN LACERATION [None]
